FAERS Safety Report 7185893-X (Version None)
Quarter: 2010Q4

REPORT INFORMATION
  Report Type: 
  Country: None (occurrence: None)
  Receive Date: 20101222
  Receipt Date: 20101209
  Transmission Date: 20110411
  Serious: Yes (Other)
  Sender: FDA-Public Use
  Company Number: US-PERRIGO-10US014743

PATIENT
  Sex: Male
  Weight: 44.444 kg

DRUGS (4)
  1. POLYETHYLENE GLYCOL 3350 [Suspect]
     Indication: CONSTIPATION
     Dosage: 17 G, TWICE WEEKLY
     Route: 048
     Dates: start: 20091001
  2. MIRALAX [Suspect]
     Indication: CONSTIPATION
     Dosage: 17 G, TWICE WEEKLY
     Route: 048
     Dates: start: 20091001
  3. CLORAZEPATE DIPOTASSIUM [Concomitant]
     Indication: CONVULSION
     Dosage: 1 TABLET, 3 TIMES DAILY
     Route: 065
     Dates: start: 19950101
  4. PRILOSEC [Concomitant]
     Indication: REFLUX OESOPHAGITIS
     Dosage: 5 ML, TID
     Route: 065

REACTIONS (6)
  - CONDITION AGGRAVATED [None]
  - DYSPNOEA [None]
  - GRAND MAL CONVULSION [None]
  - HYPERSENSITIVITY [None]
  - SOMNOLENCE [None]
  - TREMOR [None]
